FAERS Safety Report 16456452 (Version 1)
Quarter: 2019Q3

REPORT INFORMATION
  Report Type: Spontaneous
  Country: US (occurrence: US)
  Receive Date: 20190619
  Receipt Date: 20190619
  Transmission Date: 20191004
  Serious: Yes (Other)
  Sender: FDA-Public Use
  Company Number: None

PATIENT
  Age: 36 Year
  Sex: Female
  Weight: 49.5 kg

DRUGS (5)
  1. WOMAN^S MULTI-VITAMIN [Concomitant]
  2. FISH OIL [Concomitant]
     Active Substance: FISH OIL
  3. CALCIUM+ D [Concomitant]
  4. BIOTIN [Concomitant]
     Active Substance: BIOTIN
  5. ADDYI [Suspect]
     Active Substance: FLIBANSERIN
     Indication: LIBIDO DECREASED
     Dosage: ?          QUANTITY:1 TABLET(S);?
     Route: 048
     Dates: start: 20190614, end: 20190614

REACTIONS (3)
  - Anxiety [None]
  - Dizziness [None]
  - Feeling abnormal [None]

NARRATIVE: CASE EVENT DATE: 20190615
